FAERS Safety Report 9474035 (Version 2)
Quarter: 2013Q3

REPORT INFORMATION
  Report Type: Report from Study
  Country: BR (occurrence: BR)
  Receive Date: 20130823
  Receipt Date: 20130823
  Transmission Date: 20140515
  Serious: Yes (Other)
  Sender: FDA-Public Use
  Company Number: PHHY2009BR40878

PATIENT
  Age: 73 Year
  Sex: Male
  Weight: 75 kg

DRUGS (5)
  1. ACLASTA [Suspect]
     Indication: OSTEITIS DEFORMANS
     Dosage: 5 MG, 1 APPLICATION
     Route: 042
     Dates: start: 20080528
  2. CHONDROITIN GLUCOSAMIN [Suspect]
     Dosage: 3 G, DAILY
  3. SIMVASTATIN [Concomitant]
     Indication: BLOOD CHOLESTEROL INCREASED
     Dosage: 1 TABLET (20 MG) DAILY
     Route: 048
  4. ATENOLOL AND CHLORTHALIDONE [Concomitant]
     Indication: BLOOD PRESSURE ABNORMAL
     Dosage: 1 TABLET (50/12.5 MG) DAILY
     Route: 048
  5. CALCIUM D3 [Concomitant]

REACTIONS (7)
  - Hiatus hernia [Unknown]
  - Blood alkaline phosphatase decreased [Unknown]
  - Blood alkaline phosphatase increased [Not Recovered/Not Resolved]
  - Arthralgia [Recovered/Resolved]
  - Myalgia [Recovered/Resolved]
  - Osteitis deformans [Unknown]
  - Disease recurrence [Unknown]
